FAERS Safety Report 9506658 (Version 1)
Quarter: 2013Q3

REPORT INFORMATION
  Report Type: Spontaneous
  Country: SE (occurrence: SE)
  Receive Date: 20130908
  Receipt Date: 20130908
  Transmission Date: 20140515
  Serious: Yes (Death, Hospitalization, Other)
  Sender: FDA-Public Use
  Company Number: SE-MYLANLABS-2013S1019512

PATIENT
  Age: 78 Year
  Sex: Male

DRUGS (22)
  1. SOTALOL [Suspect]
     Indication: PRODUCT USED FOR UNKNOWN INDICATION
     Route: 048
     Dates: start: 19930115, end: 20130304
  2. ULTIVA [Suspect]
     Indication: PRODUCT USED FOR UNKNOWN INDICATION
     Route: 042
     Dates: start: 20130309, end: 20130310
  3. BRICANYL [Concomitant]
     Indication: PRODUCT USED FOR UNKNOWN INDICATION
  4. BISOPROLOL [Concomitant]
     Indication: PRODUCT USED FOR UNKNOWN INDICATION
  5. TRAMADOL [Concomitant]
     Indication: PRODUCT USED FOR UNKNOWN INDICATION
  6. CALCICHEW D3 [Concomitant]
     Indication: PRODUCT USED FOR UNKNOWN INDICATION
  7. SEREVENT [Concomitant]
     Indication: PRODUCT USED FOR UNKNOWN INDICATION
  8. ALENDRONATE [Concomitant]
     Indication: PRODUCT USED FOR UNKNOWN INDICATION
  9. PIPERACILLIN + TAZOBACTAM [Concomitant]
     Indication: PRODUCT USED FOR UNKNOWN INDICATION
  10. CATAPRESAN [Concomitant]
     Indication: PRODUCT USED FOR UNKNOWN INDICATION
  11. COMBIVENT [Concomitant]
     Indication: PRODUCT USED FOR UNKNOWN INDICATION
  12. ABBOTICIN [Concomitant]
     Indication: PRODUCT USED FOR UNKNOWN INDICATION
  13. COCILLANA-ETYFIN /00223001/ [Concomitant]
     Indication: PRODUCT USED FOR UNKNOWN INDICATION
  14. KALEORID [Concomitant]
     Indication: PRODUCT USED FOR UNKNOWN INDICATION
  15. FURIX [Concomitant]
     Indication: PRODUCT USED FOR UNKNOWN INDICATION
  16. TROMBYL [Concomitant]
     Indication: PRODUCT USED FOR UNKNOWN INDICATION
  17. HYDROCHLOROTHIAZIDE [Concomitant]
     Indication: PRODUCT USED FOR UNKNOWN INDICATION
     Dosage: 25 MG
  18. ALVEDON [Concomitant]
     Indication: PRODUCT USED FOR UNKNOWN INDICATION
  19. OXASCAND [Concomitant]
     Indication: PRODUCT USED FOR UNKNOWN INDICATION
  20. IMOVANE [Concomitant]
     Indication: PRODUCT USED FOR UNKNOWN INDICATION
  21. PREDNISOLONE [Concomitant]
     Indication: PRODUCT USED FOR UNKNOWN INDICATION
  22. ACETYLCYSTEINE [Concomitant]
     Indication: PRODUCT USED FOR UNKNOWN INDICATION

REACTIONS (6)
  - Interstitial lung disease [Fatal]
  - Pulmonary fibrosis [Fatal]
  - Bradycardia [Fatal]
  - Cardiac arrest [Fatal]
  - Hypotension [Fatal]
  - Prostate cancer [Unknown]
